FAERS Safety Report 5161070-9 (Version None)
Quarter: 2006Q4

REPORT INFORMATION
  Report Type: 
  Country: None (occurrence: None)
  Receive Date: 20061121
  Receipt Date: 20061108
  Transmission Date: 20070319
  Serious: Yes (Other)
  Sender: FDA-Public Use
  Company Number: 2006138555

PATIENT
  Weight: 30 kg

DRUGS (1)
  1. SOLU-MEDROL [Suspect]
     Dosage: 125 MG (1 IN 1 D), INTRAVENOUS
     Route: 042
     Dates: start: 20061101

REACTIONS (2)
  - FLUSHING [None]
  - RESPIRATION ABNORMAL [None]
